FAERS Safety Report 4835288-6 (Version None)
Quarter: 2005Q4

REPORT INFORMATION
  Report Type: 
  Country: None (occurrence: None)
  Receive Date: 20051122
  Receipt Date: 20051004
  Transmission Date: 20060501
  Serious: Yes (Hospitalization)
  Sender: FDA-Public Use
  Company Number: US-MERCK-0510USA03193

PATIENT
  Age: 67 Year
  Sex: Male

DRUGS (4)
  1. VIOXX [Suspect]
     Indication: ARTHRALGIA
     Route: 048
  2. VIOXX [Suspect]
     Route: 048
     Dates: start: 20040101, end: 20041101
  3. VIOXX [Suspect]
     Indication: RHEUMATOID ARTHRITIS
     Route: 048
  4. VIOXX [Suspect]
     Route: 048
     Dates: start: 20040101, end: 20041101

REACTIONS (11)
  - ABDOMINAL PAIN [None]
  - ABDOMINAL PAIN UPPER [None]
  - CEREBROVASCULAR ACCIDENT [None]
  - DIARRHOEA [None]
  - DYSPEPSIA [None]
  - FLUID RETENTION [None]
  - HEADACHE [None]
  - INJURY [None]
  - NAUSEA [None]
  - TRANSIENT ISCHAEMIC ATTACK [None]
  - URINARY RETENTION [None]
